FAERS Safety Report 8069715-0 (Version None)
Quarter: 2012Q1

REPORT INFORMATION
  Report Type: 
  Country: None (occurrence: None)
  Receive Date: 20120119
  Receipt Date: 20120106
  Transmission Date: 20120608
  Serious: Yes (Hospitalization, Other)
  Sender: FDA-Public Use
  Company Number: CIP11000122

PATIENT
  Sex: Female

DRUGS (15)
  1. ACTONEL [Suspect]
     Dosage: ORAL
     Route: 048
     Dates: start: 20050801, end: 20060801
  2. LANTUS [Concomitant]
  3. PLAVIX [Concomitant]
  4. ZYRTEC [Concomitant]
  5. ADIPEX /00131701/ (PHENTERMINE) [Concomitant]
  6. FOSAMAX [Suspect]
     Dosage: 70 MG, ORAL
     Route: 048
     Dates: start: 20040201, end: 20050801
  7. LASIX [Concomitant]
  8. ASPIRIN [Concomitant]
  9. BONIVA [Suspect]
     Dosage: 150 MG ONCE MONTHLY, ORAL
     Route: 048
     Dates: start: 20110829, end: 20110101
  10. PROZAC [Concomitant]
  11. LORTAB [Concomitant]
  12. ULTRAM [Concomitant]
  13. BYETTA [Concomitant]
  14. LYRICA [Concomitant]
  15. NOVOLOG [Concomitant]

REACTIONS (12)
  - BONE DISORDER [None]
  - GAIT DISTURBANCE [None]
  - BONE GRAFT [None]
  - PERIPROSTHETIC FRACTURE [None]
  - FALL [None]
  - DEVICE BREAKAGE [None]
  - PAIN IN EXTREMITY [None]
  - LOW TURNOVER OSTEOPATHY [None]
  - STRESS FRACTURE [None]
  - FRACTURE NONUNION [None]
  - COMMINUTED FRACTURE [None]
  - FEMUR FRACTURE [None]
